FAERS Safety Report 10245991 (Version 1)
Quarter: 2014Q2

REPORT INFORMATION
  Report Type: Report from Study
  Country: BR (occurrence: BR)
  Receive Date: 20140619
  Receipt Date: 20140619
  Transmission Date: 20141212
  Serious: Yes (Hospitalization)
  Sender: FDA-Public Use
  Company Number: PHHY2014BR074750

PATIENT
  Age: 61 Year
  Sex: Female
  Weight: 79 kg

DRUGS (3)
  1. SANDOSTATIN LAR [Suspect]
     Indication: ACROMEGALY
     Dosage: 2 DF, EVERY 28 DAYS
  2. SANDOSTATIN LAR [Suspect]
     Indication: BLOOD GROWTH HORMONE INCREASED
  3. CABERGOLINE [Concomitant]
     Indication: ACROMEGALY
     Dosage: 2 DF, TIW

REACTIONS (4)
  - Erysipelas [Recovering/Resolving]
  - Localised infection [Recovering/Resolving]
  - Abasia [Recovering/Resolving]
  - Wound [Recovering/Resolving]
